FAERS Safety Report 19821701 (Version 1)
Quarter: 2021Q3

REPORT INFORMATION
  Report Type: Spontaneous
  Country: US (occurrence: US)
  Receive Date: 20210913
  Receipt Date: 20210913
  Transmission Date: 20211014
  Serious: Yes (Life-Threatening)
  Sender: FDA-Public Use
  Company Number: None

PATIENT
  Age: 79 Year
  Sex: Male

DRUGS (10)
  1. CALCIUM 600 MG WITH D [Concomitant]
  2. LISINOPRIL 40 MG [Concomitant]
     Active Substance: LISINOPRIL
  3. VALACYCLOVIR 500 MG [Concomitant]
     Active Substance: VALACYCLOVIR HYDROCHLORIDE
  4. MULTIVITAMIN [Concomitant]
     Active Substance: VITAMINS
  5. REVLIMID [Suspect]
     Active Substance: LENALIDOMIDE
     Indication: PLASMA CELL MYELOMA
     Route: 048
     Dates: start: 20200817, end: 20210818
  6. ALLOPURINOL 100 MG [Concomitant]
     Active Substance: ALLOPURINOL
  7. DOXAZOSIN 4 MG [Concomitant]
     Active Substance: DOXAZOSIN MESYLATE
  8. VELCADE [Concomitant]
     Active Substance: BORTEZOMIB
  9. AMLODIPINE 2.5 MG [Concomitant]
     Active Substance: AMLODIPINE BESYLATE
  10. VITAMIN B [Concomitant]
     Active Substance: VITAMIN B

REACTIONS (2)
  - Suicidal ideation [None]
  - Depression [None]

NARRATIVE: CASE EVENT DATE: 20210811
